FAERS Safety Report 12782923 (Version 1)
Quarter: 2016Q3

REPORT INFORMATION
  Report Type: Spontaneous
  Country: US (occurrence: US)
  Receive Date: 20160926
  Receipt Date: 20160926
  Transmission Date: 20161109
  Serious: Yes (Other)
  Sender: FDA-Public Use
  Company Number: None

PATIENT
  Age: 38 Year
  Sex: Male
  Weight: 96.75 kg

DRUGS (2)
  1. HYOSCYAMINE SULFATE VIRTUS [Suspect]
     Active Substance: HYOSCYAMINE SULFATE
     Indication: DIARRHOEA
     Route: 048
     Dates: start: 20160722, end: 20160722
  2. HYOSCYAMINE SULFATE VIRTUS [Suspect]
     Active Substance: HYOSCYAMINE SULFATE
     Indication: MUSCLE SPASMS
     Route: 048
     Dates: start: 20160722, end: 20160722

REACTIONS (4)
  - Dizziness [None]
  - Somnolence [None]
  - Palpitations [None]
  - Dry mouth [None]

NARRATIVE: CASE EVENT DATE: 20160722
